FAERS Safety Report 4569605-1 (Version None)
Quarter: 2005Q1

REPORT INFORMATION
  Report Type: 
  Country: None (occurrence: None)
  Receive Date: 20050201
  Receipt Date: 20041207
  Transmission Date: 20050727
  Serious: No
  Sender: FDA-Public Use
  Company Number: 9469

PATIENT
  Age: 63 Year
  Sex: Female

DRUGS (2)
  1. PACLITAXEL [Suspect]
     Indication: METASTASES TO LUNG
     Dosage: IV
     Route: 042
  2. CARBOPLATIN [Suspect]
     Indication: METASTASES TO LUNG
     Dosage: IV
     Route: 042

REACTIONS (7)
  - DIARRHOEA [None]
  - DISEASE PROGRESSION [None]
  - HAEMOGLOBIN DECREASED [None]
  - HYPERAEMIA [None]
  - OEDEMA [None]
  - RECTAL HAEMORRHAGE [None]
  - TELANGIECTASIA [None]
